FAERS Safety Report 21898697 (Version 2)
Quarter: 2023Q2

REPORT INFORMATION
  Report Type: Other
  Country: GB (occurrence: GB)
  Receive Date: 20230123
  Receipt Date: 20230403
  Transmission Date: 20230721
  Serious: Yes (Other)
  Sender: FDA-Public Use
  Company Number: GB-002147023-NVSC2022GB023749

PATIENT

DRUGS (7)
  1. FULVESTRANT [Suspect]
     Active Substance: FULVESTRANT
     Indication: Muscle rupture
     Dosage: 250 MILLIGRAM
     Route: 065
  2. FULVESTRANT [Suspect]
     Active Substance: FULVESTRANT
     Dosage: UNK
     Route: 065
  3. KISQALI [Suspect]
     Active Substance: RIBOCICLIB
     Indication: Breast cancer
     Dosage: 200 MILLIGRAM, TID
     Route: 048
     Dates: start: 20220118
  4. KISQALI [Suspect]
     Active Substance: RIBOCICLIB
     Dosage: 200 MILLIGRAM, BID
     Route: 048
  5. KISQALI [Suspect]
     Active Substance: RIBOCICLIB
     Dosage: UNK
     Route: 065
  6. KISQALI [Suspect]
     Active Substance: RIBOCICLIB
     Dosage: 200 MILLIGRAM, BID
     Route: 048
  7. KISQALI [Suspect]
     Active Substance: RIBOCICLIB
     Dosage: UNK
     Route: 065

REACTIONS (13)
  - Abdominal distension [Recovering/Resolving]
  - COVID-19 [Recovered/Resolved]
  - Influenza like illness [Unknown]
  - Hypertension [Unknown]
  - Product use in unapproved indication [Unknown]
  - Injection site mass [Unknown]
  - Dizziness [Recovering/Resolving]
  - Pulmonary embolism [Unknown]
  - Lower respiratory tract infection [Unknown]
  - Electrocardiogram QT prolonged [Unknown]
  - Injection site pain [Unknown]
  - Injection site haemorrhage [Unknown]
  - Neutropenia [Unknown]

NARRATIVE: CASE EVENT DATE: 20220201
